FAERS Safety Report 11157163 (Version 1)
Quarter: 2015Q2

REPORT INFORMATION
  Report Type: Spontaneous
  Country: US (occurrence: None)
  Receive Date: 20150601
  Receipt Date: 20150601
  Transmission Date: 20150821
  Serious: Yes (Other)
  Sender: FDA-Public Use
  Company Number: None

PATIENT
  Age: 86 Year
  Sex: Female
  Weight: 77.11 kg

DRUGS (13)
  1. CARVEDILOL. [Concomitant]
     Active Substance: CARVEDILOL
  2. ISOSORBIDE [Concomitant]
     Active Substance: ISOSORBIDE
  3. NIACIN. [Concomitant]
     Active Substance: NIACIN
  4. VITAMIN D [Concomitant]
     Active Substance: CHOLECALCIFEROL
  5. CALCIUM [Concomitant]
     Active Substance: CALCIUM
  6. FISH OIL [Concomitant]
     Active Substance: FISH OIL
  7. HYDRALAZINE [Concomitant]
     Active Substance: HYDRALAZINE HYDROCHLORIDE
  8. TORSEMIDE. [Concomitant]
     Active Substance: TORSEMIDE
  9. GLUCOSOMINE/CHONDROITIN [Concomitant]
  10. PRADAXA [Suspect]
     Active Substance: DABIGATRAN ETEXILATE MESYLATE
     Indication: ATRIAL FIBRILLATION
     Dosage: 1 PILL  ONCE DAILY TAKEN BY MOUTH
     Route: 048
     Dates: start: 2013, end: 20150410
  11. LANTUS [Concomitant]
     Active Substance: INSULIN GLARGINE
  12. MULTIVITIMIN [Concomitant]
  13. IRON INFUSIONS [Concomitant]

REACTIONS (2)
  - Epistaxis [None]
  - Rectal haemorrhage [None]

NARRATIVE: CASE EVENT DATE: 20150410
